FAERS Safety Report 7740930-6 (Version None)
Quarter: 2011Q3

REPORT INFORMATION
  Report Type: 
  Country: None (occurrence: None)
  Receive Date: 20110909
  Receipt Date: 20110901
  Transmission Date: 20111222
  Serious: Yes (Death)
  Sender: FDA-Public Use
  Company Number: PHHY2011AR76685

PATIENT
  Age: 75 Year
  Sex: Male

DRUGS (1)
  1. EXFORGE [Suspect]
     Dosage: 1 DF, DAILY
     Dates: start: 20091201

REACTIONS (1)
  - SYNCOPE [None]
